FAERS Safety Report 5913925-2 (Version None)
Quarter: 2008Q4

REPORT INFORMATION
  Report Type: 
  Country: None (occurrence: None)
  Receive Date: 20081009
  Receipt Date: 20081007
  Transmission Date: 20090506
  Serious: Yes (Hospitalization)
  Sender: FDA-Public Use
  Company Number: B0540834A

PATIENT
  Age: 43 Year
  Sex: Female

DRUGS (2)
  1. LAMICTAL [Suspect]
     Indication: DEPRESSED MOOD
     Dosage: 100MG PER DAY
     Route: 048
     Dates: start: 20080201, end: 20080919
  2. WELLBUTRIN [Suspect]
     Indication: DEPRESSED MOOD
     Dosage: 150MG PER DAY
     Route: 048
     Dates: start: 20080825, end: 20080919

REACTIONS (4)
  - AGEUSIA [None]
  - DRY MOUTH [None]
  - RASH MACULAR [None]
  - VAGINAL ERYTHEMA [None]
